FAERS Safety Report 7922267 (Version 3)
Quarter: 2015Q1

REPORT INFORMATION
  Report Type: Spontaneous
  Country: US (occurrence: US)
  Receive Date: 20110429
  Receipt Date: 20150314
  Transmission Date: 20150721
  Serious: No
  Sender: FDA-Public Use
  Company Number: US-ASTRAZENECA-2011SE09779

PATIENT
  Age: 58 Year
  Sex: Female

DRUGS (1)
  1. NEXIUM [Suspect]
     Active Substance: ESOMEPRAZOLE MAGNESIUM
     Dosage: 40 MG ,UNKNOWN
     Route: 048

REACTIONS (3)
  - Regurgitation [Not Recovered/Not Resolved]
  - Gastroenteritis viral [Unknown]
  - Drug dose omission [Unknown]
